FAERS Safety Report 5196716-2 (Version None)
Quarter: 2006Q4

REPORT INFORMATION
  Report Type: 
  Country: None (occurrence: None)
  Receive Date: 20061227
  Receipt Date: 20061211
  Transmission Date: 20070319
  Serious: Yes (Other)
  Sender: FDA-Public Use
  Company Number: 2006152088

PATIENT
  Age: 53 Year
  Sex: Male
  Weight: 117 kg

DRUGS (4)
  1. SUTENT [Suspect]
     Indication: METASTASIS
     Dates: start: 20061101
  2. LANTHANUM CARBONATE [Concomitant]
  3. INSULIN [Concomitant]
  4. VITAMIN D [Concomitant]

REACTIONS (3)
  - BLOOD CALCIUM DECREASED [None]
  - BLOOD PHOSPHORUS INCREASED [None]
  - DIALYSIS [None]
